FAERS Safety Report 5954908-6 (Version None)
Quarter: 2008Q4

REPORT INFORMATION
  Report Type: 
  Country: None (occurrence: None)
  Receive Date: 20081117
  Receipt Date: 20081016
  Transmission Date: 20090506
  Serious: No
  Sender: FDA-Public Use
  Company Number: US-BAYER-200833707NA

PATIENT
  Age: 46 Year
  Sex: Female

DRUGS (1)
  1. CLIMARA PRO [Suspect]
     Indication: HORMONE REPLACEMENT THERAPY
     Route: 062

REACTIONS (6)
  - BREAST TENDERNESS [None]
  - DISTURBANCE IN ATTENTION [None]
  - HEADACHE [None]
  - LACRIMATION INCREASED [None]
  - METRORRHAGIA [None]
  - PREMENSTRUAL SYNDROME [None]
